FAERS Safety Report 4458002-5 (Version None)
Quarter: 2004Q3

REPORT INFORMATION
  Report Type: 
  Country: None (occurrence: None)
  Receive Date: 20040922
  Receipt Date: 20040903
  Transmission Date: 20050211
  Serious: Yes (Other)
  Sender: FDA-Public Use
  Company Number: JP_040904406

PATIENT
  Age: 67 Year
  Sex: Male
  Weight: 60 kg

DRUGS (5)
  1. VANCOMYCIN [Suspect]
     Indication: PNEUMONIA STAPHYLOCOCCAL
     Dosage: 500 MG/2 DAY
     Dates: start: 20040809, end: 20040819
  2. KIDMIN [Concomitant]
  3. GASTER (FAMOTIDINE) [Concomitant]
  4. FESIN(SACCHARATED IRON OXIDE) [Concomitant]
  5. MEROPEN(MEROPENEM) [Concomitant]

REACTIONS (3)
  - ALANINE AMINOTRANSFERASE INCREASED [None]
  - ASPARTATE AMINOTRANSFERASE INCREASED [None]
  - LIVER DISORDER [None]
